FAERS Safety Report 21594999 (Version 1)
Quarter: 2022Q4

REPORT INFORMATION
  Report Type: Report from Study
  Country: CA (occurrence: CA)
  Receive Date: 20221115
  Receipt Date: 20221115
  Transmission Date: 20230112
  Serious: Yes (Other)
  Sender: FDA-Public Use
  Company Number: CA-SUN PHARMACEUTICAL INDUSTRIES LTD-2022R1-363566

PATIENT
  Age: 26 Year
  Sex: Female

DRUGS (5)
  1. AZITHROMYCIN [Suspect]
     Active Substance: AZITHROMYCIN
     Indication: Pneumonia bacterial
     Dosage: 500 MILLIGRAM, DAILY
     Route: 042
  2. HYDROXYCHLOROQUINE [Suspect]
     Active Substance: HYDROXYCHLOROQUINE
     Indication: COVID-19 pneumonia
     Dosage: 200 MILLIGRAM, TID
     Route: 048
  3. AMOXICILLIN\CLAVULANIC ACID [Suspect]
     Active Substance: AMOXICILLIN\CLAVULANIC ACID
     Indication: COVID-19 pneumonia
     Dosage: 875-125 MILLIGRAM, BID
     Route: 048
  4. CEFTRIAXONE [Suspect]
     Active Substance: CEFTRIAXONE
     Indication: Pneumonia bacterial
     Dosage: 2 GRAM, DAILY
     Route: 042
  5. DALTEPARIN [Suspect]
     Active Substance: DALTEPARIN
     Indication: Anticoagulant therapy
     Dosage: 5000 U, DAILY
     Route: 058

REACTIONS (2)
  - Condition aggravated [Unknown]
  - Exposure during pregnancy [Unknown]
